FAERS Safety Report 7873571-0 (Version None)
Quarter: 2011Q4

REPORT INFORMATION
  Report Type: 
  Country: None (occurrence: None)
  Receive Date: 20111030
  Receipt Date: 20110505
  Transmission Date: 20120403
  Serious: Yes (Hospitalization)
  Sender: FDA-Public Use
  Company Number: US-AMGEN-USASP2011023457

PATIENT
  Sex: Female

DRUGS (1)
  1. ENBREL [Suspect]
     Indication: CONNECTIVE TISSUE DISORDER
     Dates: start: 20021201, end: 20060101

REACTIONS (7)
  - PAIN [None]
  - LYMPHOMA [None]
  - INFLAMMATION [None]
  - SWELLING [None]
  - JOINT STIFFNESS [None]
  - THERAPEUTIC RESPONSE DECREASED [None]
  - MUSCULOSKELETAL STIFFNESS [None]
